FAERS Safety Report 17225708 (Version 1)
Quarter: 2019Q4

REPORT INFORMATION
  Report Type: Spontaneous
  Country: US (occurrence: US)
  Receive Date: 20191209
  Receipt Date: 20191209
  Transmission Date: 20200122
  Serious: No
  Sender: FDA-Public Use
  Company Number: None

PATIENT
  Age: 53 Year
  Sex: Male
  Weight: 56 kg

DRUGS (1)
  1. CISPLATIN (CISPLATIN 1MG/ML INJ) [Suspect]
     Active Substance: CISPLATIN
     Indication: OESOPHAGEAL CARCINOMA
     Dosage: ?          OTHER FREQUENCY:QWEEK;?
     Route: 042
     Dates: start: 20190820, end: 20191002

REACTIONS (4)
  - Hypomagnesaemia [None]
  - Hypokalaemia [None]
  - Hyponatraemia [None]
  - Electrolyte imbalance [None]

NARRATIVE: CASE EVENT DATE: 20191011
